FAERS Safety Report 6018599-0 (Version None)
Quarter: 2008Q4

REPORT INFORMATION
  Report Type: 
  Country: None (occurrence: None)
  Receive Date: 20081223
  Receipt Date: 20081219
  Transmission Date: 20090506
  Serious: Yes (Death)
  Sender: FDA-Public Use
  Company Number: KR-B.I. PHARMACEUTICALS,INC./RIDGEFIELD-2008-DE-07848GD

PATIENT
  Sex: Female

DRUGS (5)
  1. DIPYRIDAMOLE [Suspect]
     Indication: MALIGNANT ATROPHIC PAPULOSIS
  2. ASPIRIN [Suspect]
     Indication: MALIGNANT ATROPHIC PAPULOSIS
  3. PREDNISOLONE [Suspect]
     Indication: MALIGNANT ATROPHIC PAPULOSIS
  4. HEPARIN [Suspect]
     Indication: MALIGNANT ATROPHIC PAPULOSIS
  5. HYPOGLYCEMIC AGENTS [Concomitant]
     Indication: DIABETES MELLITUS
     Route: 048

REACTIONS (3)
  - DISEASE PROGRESSION [None]
  - DRUG INEFFECTIVE [None]
  - PERITONITIS [None]
